FAERS Safety Report 4755962-X (Version None)
Quarter: 2005Q3

REPORT INFORMATION
  Report Type: 
  Country: None (occurrence: None)
  Receive Date: 20050826
  Receipt Date: 20050407
  Transmission Date: 20060218
  Serious: Yes (Other)
  Sender: FDA-Public Use
  Company Number: USA-2003-0008753

PATIENT
  Age: 54 Year
  Sex: Male
  Weight: 92.1 kg

DRUGS (9)
  1. OXYCONTIN [Suspect]
     Indication: PAIN
     Dosage: 20 MG, BID, ORAL
     Route: 048
     Dates: start: 19990902, end: 19990928
  2. OXYIR [Concomitant]
  3. RELAFEN [Concomitant]
  4. NORFLEX [Concomitant]
  5. GLUCOPHAGE [Concomitant]
  6. AMARYL [Concomitant]
  7. SOMA [Concomitant]
  8. IBUPROFEN [Concomitant]
  9. ACIPHEX [Concomitant]

REACTIONS (14)
  - ANXIETY [None]
  - DEPRESSION [None]
  - DIARRHOEA [None]
  - DRUG DEPENDENCE [None]
  - DRUG WITHDRAWAL SYNDROME [None]
  - HEADACHE [None]
  - HYPERHIDROSIS [None]
  - INSOMNIA [None]
  - IRRITABILITY [None]
  - NAUSEA [None]
  - NERVOUSNESS [None]
  - TREMOR [None]
  - VOMITING [None]
  - WEIGHT DECREASED [None]
